FAERS Safety Report 19810599 (Version 7)
Quarter: 2025Q1

REPORT INFORMATION
  Report Type: Report from Study
  Country: US (occurrence: US)
  Receive Date: 20210909
  Receipt Date: 20250205
  Transmission Date: 20250409
  Serious: Yes (Other)
  Sender: ROCHE
  Company Number: US-ROCHE-2903671

PATIENT
  Age: 53 Year
  Sex: Female

DRUGS (29)
  1. ACTEMRA [Suspect]
     Active Substance: TOCILIZUMAB
     Indication: Iridocyclitis
     Dosage: INJECT 162MG SUBCUTANEOUSLY EVERY WEEK
     Route: 058
  2. ACTEMRA [Suspect]
     Active Substance: TOCILIZUMAB
     Indication: Cyclitis
     Route: 058
  3. ACTEMRA [Suspect]
     Active Substance: TOCILIZUMAB
     Indication: Diabetes insipidus
     Dosage: INJECT 162MG SUBCUTANEOUSLY EVERY WEEK,
     Route: 058
     Dates: start: 2021
  4. ACTEMRA [Suspect]
     Active Substance: TOCILIZUMAB
     Indication: Iridocyclitis
     Dosage: 400 MG SINGLE-USE VIAL
     Route: 040
  5. ACTEMRA [Suspect]
     Active Substance: TOCILIZUMAB
     Indication: Iritis
  6. METFORMIN [Concomitant]
     Active Substance: METFORMIN HYDROCHLORIDE
  7. BASAGLAR [Concomitant]
     Active Substance: INSULIN GLARGINE
  8. REMICADE [Concomitant]
     Active Substance: INFLIXIMAB
  9. ASPIRIN [Concomitant]
     Active Substance: ASPIRIN
     Route: 048
     Dates: start: 20200304
  10. LIPITOR [Concomitant]
     Active Substance: ATORVASTATIN CALCIUM
     Route: 048
     Dates: start: 20160125
  11. BASAGLAR KWIKPEN [Concomitant]
     Active Substance: INSULIN GLARGINE
     Route: 058
     Dates: start: 20190205
  12. ALPHAGAN P [Concomitant]
     Active Substance: BRIMONIDINE TARTRATE
     Dates: start: 20200529
  13. PROLENSA [Concomitant]
     Active Substance: BROMFENAC SODIUM
     Dates: start: 20200529
  14. CELEXA [Concomitant]
     Active Substance: CITALOPRAM HYDROBROMIDE
     Route: 048
     Dates: start: 20170130
  15. FLEXERIL [Concomitant]
     Active Substance: CYCLOBENZAPRINE HYDROCHLORIDE
     Route: 048
     Dates: start: 20200108
  16. RESTASIS [Concomitant]
     Active Substance: CYCLOSPORINE
     Dates: start: 20210205
  17. TRULICITY [Concomitant]
     Active Substance: DULAGLUTIDE
     Route: 058
  18. LASIX [Concomitant]
     Active Substance: FUROSEMIDE
     Route: 048
     Dates: start: 20150531
  19. ATARAX [Concomitant]
     Active Substance: HYDROXYZINE HYDROCHLORIDE
  20. LISINOPRIL [Concomitant]
     Active Substance: LISINOPRIL
  21. PRED FORTE [Concomitant]
     Active Substance: PREDNISOLONE ACETATE
  22. OZEMPIC [Concomitant]
     Active Substance: SEMAGLUTIDE
  23. LYRICA [Concomitant]
     Active Substance: PREGABALIN
  24. DELTASONE [Concomitant]
     Active Substance: PREDNISONE
  25. PRILOSEC [Concomitant]
     Active Substance: OMEPRAZOLE MAGNESIUM
  26. PATADAY [Concomitant]
     Active Substance: OLOPATADINE HYDROCHLORIDE
  27. MYCOLOG-II [Concomitant]
     Active Substance: NYSTATIN\TRIAMCINOLONE ACETONIDE
  28. MEDROL [Concomitant]
     Active Substance: METHYLPREDNISOLONE
  29. GLUCOPHAGE [Concomitant]
     Active Substance: METFORMIN HYDROCHLORIDE

REACTIONS (5)
  - Blindness [Unknown]
  - Off label use [Unknown]
  - Uveitis [Unknown]
  - Diabetes mellitus [Unknown]
  - Infection [Unknown]
